FAERS Safety Report 11205858 (Version 1)
Quarter: 2015Q2

REPORT INFORMATION
  Report Type: Spontaneous
  Country: US (occurrence: None)
  Receive Date: 20150619
  Receipt Date: 20150619
  Transmission Date: 20150821
  Serious: Yes (Life-Threatening, Hospitalization)
  Sender: FDA-Public Use
  Company Number: None

PATIENT
  Age: 65 Year
  Sex: Male
  Weight: 66.4 kg

DRUGS (2)
  1. OXYCODONE [Suspect]
     Active Substance: OXYCODONE
     Indication: PAIN
     Route: 048
     Dates: start: 20120730
  2. OXYCODONE [Suspect]
     Active Substance: OXYCODONE
     Indication: PAIN
     Route: 048
     Dates: start: 20111227

REACTIONS (7)
  - Hypoxia [None]
  - Cardiac arrest [None]
  - Confusional state [None]
  - Respiratory depression [None]
  - Respiratory acidosis [None]
  - Sedation [None]
  - Pulseless electrical activity [None]

NARRATIVE: CASE EVENT DATE: 20150609
